FAERS Safety Report 13240686 (Version 1)
Quarter: 2017Q1

REPORT INFORMATION
  Report Type: Spontaneous
  Country: US (occurrence: US)
  Receive Date: 20170216
  Receipt Date: 20170216
  Transmission Date: 20170428
  Serious: No
  Sender: FDA-Public Use
  Company Number: US-RELYPSA-RLY2016004177

PATIENT
  Age: 62 Year
  Sex: Male

DRUGS (8)
  1. VELTASSA [Suspect]
     Active Substance: PATIROMER
     Indication: HYPERKALAEMIA
     Dosage: 8.4 G, QD
     Route: 048
     Dates: start: 20161105
  2. CARVEDILOL. [Concomitant]
     Active Substance: CARVEDILOL
  3. CALCITRIOL. [Concomitant]
     Active Substance: CALCITRIOL
  4. NYSTATIN AND TRIAMCINOLONE [Concomitant]
     Active Substance: NYSTATIN\TRIAMCINOLONE ACETONIDE
  5. FINASTERIDE. [Concomitant]
     Active Substance: FINASTERIDE
  6. BUMETANIDE. [Concomitant]
     Active Substance: BUMETANIDE
  7. GLYBURIDE. [Concomitant]
     Active Substance: GLYBURIDE
  8. GABAPENTIN. [Concomitant]
     Active Substance: GABAPENTIN

REACTIONS (2)
  - Vomiting [Recovered/Resolved]
  - Nausea [Recovered/Resolved]

NARRATIVE: CASE EVENT DATE: 20161105
